FAERS Safety Report 7099332-0 (Version None)
Quarter: 2010Q4

REPORT INFORMATION
  Report Type: 
  Country: None (occurrence: None)
  Receive Date: 20101105
  Receipt Date: 20101027
  Transmission Date: 20110411
  Serious: Yes (Other)
  Sender: FDA-Public Use
  Company Number: 019522

PATIENT
  Sex: Female

DRUGS (2)
  1. KEPPRA [Suspect]
     Indication: EPILEPSY
     Dosage: (250 MG BID ORAL), (625 MG, 250MG AM AND 375 MG (1 AND 1/2 TABLETS) IN EVENING ORAL)
     Route: 048
     Dates: start: 20100302
  2. TEGRETOL [Concomitant]

REACTIONS (5)
  - ECZEMA [None]
  - EYE PRURITUS [None]
  - EYE SWELLING [None]
  - RASH [None]
  - SKIN LESION [None]
